FAERS Safety Report 8286833-2 (Version None)
Quarter: 2012Q2

REPORT INFORMATION
  Report Type: 
  Country: None (occurrence: None)
  Receive Date: 20120416
  Receipt Date: 20120403
  Transmission Date: 20120825
  Serious: Yes (Other)
  Sender: FDA-Public Use
  Company Number: CA-ELI_LILLY_AND_COMPANY-CA201204002239

PATIENT
  Age: 36 Year
  Sex: Male

DRUGS (2)
  1. LYRICA [Concomitant]
     Indication: BACK PAIN
  2. CYMBALTA [Suspect]
     Indication: BACK PAIN
     Dosage: 120 MG, UNKNOWN

REACTIONS (1)
  - HEPATITIS [None]
